FAERS Safety Report 16050392 (Version 2)
Quarter: 2019Q2

REPORT INFORMATION
  Report Type: Spontaneous
  Country: JP (occurrence: JP)
  Receive Date: 20190308
  Receipt Date: 20190618
  Transmission Date: 20190711
  Serious: Yes (Other)
  Sender: FDA-Public Use
  Company Number: JP-REGENERON PHARMACEUTICALS, INC.-2019-19120

PATIENT

DRUGS (2)
  1. EYLEA [Suspect]
     Active Substance: AFLIBERCEPT
     Indication: POLYPOIDAL CHOROIDAL VASCULOPATHY
     Dosage: 2 MG DAILY, RIGHT EYE
     Route: 031
     Dates: start: 20190208, end: 20190208
  2. EYLEA [Suspect]
     Active Substance: AFLIBERCEPT
     Indication: AGE-RELATED MACULAR DEGENERATION
     Dosage: 2 MG DAILY, RIGHT EYE
     Route: 031
     Dates: start: 20190111, end: 20190111

REACTIONS (1)
  - IIIrd nerve paralysis [Recovering/Resolving]

NARRATIVE: CASE EVENT DATE: 20190209
